FAERS Safety Report 24721604 (Version 1)
Quarter: 2024Q4

REPORT INFORMATION
  Report Type: Spontaneous
  Country: US (occurrence: None)
  Receive Date: 20241211
  Receipt Date: 20241211
  Transmission Date: 20250115
  Serious: Yes (Hospitalization)
  Sender: Public
  Company Number: None

PATIENT
  Age: 18 Year
  Sex: Male
  Weight: 64.5 kg

DRUGS (5)
  1. MERCAPTOPURINE [Suspect]
     Active Substance: MERCAPTOPURINE
  2. METHOTREXATE [Suspect]
     Active Substance: METHOTREXATE
  3. PREDNISONE [Suspect]
     Active Substance: PREDNISONE
  4. GLEEVEC [Suspect]
     Active Substance: IMATINIB MESYLATE
  5. VINCRISTINE SULFATE [Suspect]
     Active Substance: VINCRISTINE SULFATE

REACTIONS (9)
  - Febrile neutropenia [None]
  - Atypical pneumonia [None]
  - Hypotension [None]
  - Tachycardia [None]
  - Shock [None]
  - Hypokalaemia [None]
  - Pulmonary oedema [None]
  - Oxygen saturation decreased [None]
  - Dyspnoea [None]

NARRATIVE: CASE EVENT DATE: 20241204
